FAERS Safety Report 5351311-7 (Version None)
Quarter: 2007Q2

REPORT INFORMATION
  Report Type: 
  Country: None (occurrence: None)
  Receive Date: 20070516
  Receipt Date: 20070102
  Transmission Date: 20071010
  Serious: Yes (Other)
  Sender: FDA-Public Use
  Company Number: 2007001644

PATIENT
  Sex: Female

DRUGS (1)
  1. DEPO-PROVERA [Suspect]
     Indication: ENDOMETRIOSIS
     Dosage: 150 MG (150 MG, FIRST INJECTION), INTRAMUSCULAR/ONE AND HALF YEAR AGO-
     Route: 030

REACTIONS (5)
  - ALOPECIA [None]
  - BONE DENSITY DECREASED [None]
  - BREAST ENLARGEMENT [None]
  - NIPPLE PAIN [None]
  - WEIGHT INCREASED [None]
